FAERS Safety Report 8505557-7 (Version None)
Quarter: 2012Q3

REPORT INFORMATION
  Report Type: 
  Country: None (occurrence: None)
  Receive Date: 20120703
  Receipt Date: 20120618
  Transmission Date: 20120928
  Serious: Yes (Hospitalization)
  Sender: FDA-Public Use
  Company Number: ENTC2012-0280

PATIENT
  Age: 63 Year
  Sex: Male

DRUGS (6)
  1. STALEVO 50 [Suspect]
     Indication: PARKINSON'S DISEASE
     Dosage: 200/50/200 MG, 1 TABLET 6 TIMES PER, ORAL;  4 TIMES  PER DAY, ORAL; 4 TIMES PER DAY AND 150/37.5/200
     Route: 048
     Dates: start: 20101001, end: 20110601
  2. SINEMET CR [Concomitant]
  3. MOTILIUM [Concomitant]
  4. PRAMIPEXOLE DIHYDROCHLORIDE [Concomitant]
  5. AZILECT [Concomitant]
  6. PRAZEPAM [Concomitant]

REACTIONS (6)
  - PSYCHOLOGICAL TRAUMA [None]
  - DYSKINESIA [None]
  - INSOMNIA [None]
  - ANXIETY [None]
  - TREMOR [None]
  - NEUROMUSCULAR BLOCKADE [None]
